FAERS Safety Report 8506323-9 (Version None)
Quarter: 2012Q3

REPORT INFORMATION
  Report Type: 
  Country: None (occurrence: None)
  Receive Date: 20120712
  Receipt Date: 20120703
  Transmission Date: 20120928
  Serious: Yes (Other)
  Sender: FDA-Public Use
  Company Number: AT-ROCHE-1085980

PATIENT
  Age: 62 Year
  Sex: Male
  Weight: 70.098 kg

DRUGS (2)
  1. LUCENTIS [Suspect]
     Indication: PRODUCT USED FOR UNKNOWN INDICATION
     Route: 050
     Dates: start: 20120125
  2. LUCENTIS [Suspect]
     Route: 050
     Dates: start: 20120201

REACTIONS (2)
  - RENAL FAILURE [None]
  - BLOOD PRESSURE DECREASED [None]
